FAERS Safety Report 4354945-1 (Version None)
Quarter: 2004Q2

REPORT INFORMATION
  Report Type: 
  Country: None (occurrence: None)
  Receive Date: 20040504
  Receipt Date: 20040421
  Transmission Date: 20050107
  Serious: Yes (Other)
  Sender: FDA-Public Use
  Company Number: 2004027252

PATIENT
  Age: 45 Year
  Sex: Male
  Weight: 97.5234 kg

DRUGS (3)
  1. LIPITOR [Suspect]
     Indication: BLOOD CHOLESTEROL INCREASED
     Dosage: 10 MG, (DAILY), ORAL
     Route: 048
     Dates: start: 20040101
  2. HYPERICUM PERFORATUM (HYPERICUM PERFORATUM) [Concomitant]
  3. VITAMINS (VITAMINS) [Concomitant]

REACTIONS (13)
  - BACK PAIN [None]
  - EJACULATION DISORDER [None]
  - EMOTIONAL DISTRESS [None]
  - ERECTILE DYSFUNCTION [None]
  - FATIGUE [None]
  - HYPOAESTHESIA [None]
  - INTERVERTEBRAL DISC PROTRUSION [None]
  - MITRAL VALVE PROLAPSE [None]
  - MUSCULAR WEAKNESS [None]
  - PAIN IN EXTREMITY [None]
  - PARAESTHESIA [None]
  - SENSORY LOSS [None]
  - SEXUAL DYSFUNCTION [None]
